FAERS Safety Report 5980083-8 (Version None)
Quarter: 2008Q4

REPORT INFORMATION
  Report Type: 
  Country: None (occurrence: None)
  Receive Date: 20081205
  Receipt Date: 20081201
  Transmission Date: 20090506
  Serious: Yes (Death, Hospitalization)
  Sender: FDA-Public Use
  Company Number: US-CELGENEUS-163-21880-08100285

PATIENT
  Sex: Male

DRUGS (2)
  1. REVLIMID [Suspect]
     Indication: MULTIPLE MYELOMA
     Route: 048
     Dates: start: 20080512, end: 20080101
  2. REVLIMID [Suspect]
     Route: 048
     Dates: start: 20080401, end: 20080501

REACTIONS (4)
  - BLOOD COUNT ABNORMAL [None]
  - HYPERCALCAEMIA [None]
  - MULTIPLE MYELOMA [None]
  - RASH [None]
